FAERS Safety Report 4334686-7 (Version None)
Quarter: 2004Q1

REPORT INFORMATION
  Report Type: 
  Country: None (occurrence: None)
  Receive Date: 20040329
  Receipt Date: 20031210
  Transmission Date: 20041129
  Serious: No
  Sender: FDA-Public Use
  Company Number: 03P-163-0244411

PATIENT
  Age: 69 Year
  Sex: Female

DRUGS (6)
  1. HUMIRA [Suspect]
     Indication: RHEUMATOID ARTHRITIS
     Dates: start: 20030901, end: 20031101
  2. METOPROLOL [Concomitant]
  3. FLUOXETINE HCL [Concomitant]
  4. PREDNISONE [Concomitant]
  5. CELECOXIB [Concomitant]
  6. OMEPRAZOLE [Concomitant]

REACTIONS (2)
  - DECREASED APPETITE [None]
  - FATIGUE [None]
